FAERS Safety Report 7382961-4 (Version None)
Quarter: 2011Q1

REPORT INFORMATION
  Report Type: 
  Country: None (occurrence: None)
  Receive Date: 20110328
  Receipt Date: 20110328
  Transmission Date: 20110831
  Serious: No
  Sender: FDA-Public Use
  Company Number: None

PATIENT
  Age: 18 Year
  Sex: Female
  Weight: 61.2356 kg

DRUGS (1)
  1. ABILIFY [Suspect]
     Indication: OPPOSITIONAL DEFIANT DISORDER
     Dosage: ABILIFY 10MG 1X MOUTH
     Route: 048
     Dates: start: 20110130, end: 20110215

REACTIONS (3)
  - PRODUCT SUBSTITUTION ISSUE [None]
  - PRODUCT FORMULATION ISSUE [None]
  - IRRITABILITY [None]
